FAERS Safety Report 4888358-0 (Version None)
Quarter: 2006Q1

REPORT INFORMATION
  Report Type: 
  Country: None (occurrence: None)
  Receive Date: 20060119
  Receipt Date: 20060109
  Transmission Date: 20060701
  Serious: Yes (Other)
  Sender: FDA-Public Use
  Company Number: 2005158410

PATIENT
  Age: 54 Year
  Sex: Male
  Weight: 87.0906 kg

DRUGS (4)
  1. TIKOSYN [Suspect]
     Indication: VENTRICULAR TACHYCARDIA
     Dosage: 1000 MCG (500 MCG, BID)
     Dates: start: 19990101
  2. NEXIUM [Concomitant]
  3. ALBUTEROL [Concomitant]
  4. PLAQUENIL [Concomitant]

REACTIONS (13)
  - ABNORMAL DREAMS [None]
  - ANGER [None]
  - BIPOLAR DISORDER [None]
  - CONDITION AGGRAVATED [None]
  - DISORIENTATION [None]
  - DISTURBANCE IN ATTENTION [None]
  - DYSSTASIA [None]
  - INSOMNIA [None]
  - MEDICAL DEVICE COMPLICATION [None]
  - PANIC ATTACK [None]
  - POST-TRAUMATIC STRESS DISORDER [None]
  - ROAD TRAFFIC ACCIDENT [None]
  - TACHYCARDIA [None]
